FAERS Safety Report 7982472-9 (Version None)
Quarter: 2011Q4

REPORT INFORMATION
  Report Type: 
  Country: None (occurrence: None)
  Receive Date: 20111215
  Receipt Date: 20111212
  Transmission Date: 20120403
  Serious: Yes (Death, Other)
  Sender: FDA-Public Use
  Company Number: PHHY2011DE108405

PATIENT

DRUGS (3)
  1. CLOZAPINE [Suspect]
  2. ESCITALOPRAM [Concomitant]
  3. MIRTAZAPINE [Concomitant]

REACTIONS (5)
  - VOMITING [None]
  - BLOOD ALCOHOL INCREASED [None]
  - SEDATION [None]
  - ANTIPSYCHOTIC DRUG LEVEL INCREASED [None]
  - ASPIRATION [None]
